FAERS Safety Report 21849725 (Version 2)
Quarter: 2023Q2

REPORT INFORMATION
  Report Type: Spontaneous
  Country: US (occurrence: US)
  Receive Date: 20230111
  Receipt Date: 20230530
  Transmission Date: 20230722
  Serious: Yes (Other)
  Sender: FDA-Public Use
  Company Number: US-FOUNDATIONCONSUMERHC-2022-US-022942

PATIENT
  Age: 33 Year
  Sex: Female
  Weight: 73.03 kg

DRUGS (3)
  1. PLAN B ONE-STEP [Suspect]
     Active Substance: LEVONORGESTREL
     Indication: Post coital contraception
     Dosage: 1.5 MG X 1 DOSE
     Route: 065
     Dates: start: 20220804, end: 20220804
  2. PRILOSEC [Concomitant]
     Active Substance: OMEPRAZOLE MAGNESIUM
  3. VITAMINS [Concomitant]
     Active Substance: VITAMINS

REACTIONS (3)
  - Drug ineffective [Recovered/Resolved]
  - Pregnancy after post coital contraception [Recovered/Resolved]
  - Subchorionic haemorrhage [Recovered/Resolved]

NARRATIVE: CASE EVENT DATE: 20220804
